FAERS Safety Report 8376491-0 (Version None)
Quarter: 2012Q2

REPORT INFORMATION
  Report Type: 
  Country: None (occurrence: None)
  Receive Date: 20120522
  Receipt Date: 20120516
  Transmission Date: 20120825
  Serious: Yes (Other)
  Sender: FDA-Public Use
  Company Number: US-PFIZER INC-2012119544

PATIENT
  Sex: Female
  Weight: 126 kg

DRUGS (4)
  1. GLUCOPHAGE [Concomitant]
     Dosage: UNK
  2. ZONEGRAN [Concomitant]
     Dosage: UNK
  3. PREMARIN [Suspect]
     Indication: HORMONE REPLACEMENT THERAPY
     Dosage: 1.25 MG, 1X/DAY
     Route: 048
     Dates: start: 20040530
  4. RELPAX [Concomitant]
     Dosage: UNK

REACTIONS (1)
  - SYNCOPE [None]
